FAERS Safety Report 7427383-2 (Version None)
Quarter: 2011Q2

REPORT INFORMATION
  Report Type: 
  Country: None (occurrence: None)
  Receive Date: 20110420
  Receipt Date: 20110405
  Transmission Date: 20111010
  Serious: Yes (Death, Life-Threatening, Hospitalization, Other)
  Sender: FDA-Public Use
  Company Number: FR-PFIZER INC-FR-WYE-G01325908

PATIENT
  Age: 87 Year
  Sex: Female

DRUGS (13)
  1. MOPRAL [Suspect]
     Dosage: 20 MG, 1X/DAY
     Route: 048
  2. LOVENOX [Concomitant]
     Dosage: UNK
     Dates: start: 20080102, end: 20080107
  3. TAHOR [Suspect]
     Dosage: 40 MG, 1X/DAY
     Route: 048
  4. AMLODIPINE BESYLATE [Suspect]
     Dosage: 5 MG, 1X/DAY
     Route: 048
     Dates: end: 20080112
  5. PREVISCAN [Suspect]
     Dosage: 20 MG, 1X/DAY
     Route: 048
     Dates: start: 20080108, end: 20080111
  6. EFFEXOR [Suspect]
     Dosage: 50 MG, UNK
     Route: 048
     Dates: end: 20080112
  7. KARDEGIC [Suspect]
     Dosage: 75 MG, 1X/DAY
     Route: 048
     Dates: start: 20080108, end: 20080111
  8. KERLONE [Suspect]
     Dosage: 10 MG, 1X/DAY
     Route: 048
     Dates: end: 20080112
  9. ARIXTRA [Suspect]
     Dosage: 7.5MG/0.6ML SOLUTION FOR INJECTION DAILY
     Route: 058
     Dates: start: 20080108, end: 20080110
  10. LASIX [Concomitant]
     Route: 051
  11. SPIRONOLACTONE [Suspect]
     Dosage: 50 MG, 1X/DAY
     Route: 048
     Dates: end: 20080112
  12. PLAVIX [Suspect]
     Dosage: 75 MG, 1X/DAY
     Route: 048
     Dates: start: 20071231, end: 20080111
  13. TRINIPATCH [Suspect]
     Dosage: 10 MG/24H TRANSDERMAL PATCH DAILY
     Route: 062
     Dates: end: 20080112

REACTIONS (10)
  - MUSCLE HAEMORRHAGE [None]
  - ANAEMIA [None]
  - FALL [None]
  - INTERNATIONAL NORMALISED RATIO INCREASED [None]
  - VENTRICULAR TACHYCARDIA [None]
  - SYNCOPE [None]
  - TROPONIN INCREASED [None]
  - LEFT VENTRICULAR FAILURE [None]
  - VENTRICULAR HYPOKINESIA [None]
  - VENTRICULAR FIBRILLATION [None]
